FAERS Safety Report 19836763 (Version 1)
Quarter: 2021Q3

REPORT INFORMATION
  Report Type: Spontaneous
  Country: GB (occurrence: GB)
  Receive Date: 20210916
  Receipt Date: 20210916
  Transmission Date: 20211014
  Serious: Yes (Death, Hospitalization)
  Sender: FDA-Public Use
  Company Number: GB-TEVA-2021-GB-1952391

PATIENT
  Age: 54 Year
  Sex: Female

DRUGS (2)
  1. ABEMACICLIB [Suspect]
     Active Substance: ABEMACICLIB
     Indication: INVASIVE LOBULAR BREAST CARCINOMA
     Dosage: 300 MILLIGRAM DAILY;
     Route: 048
  2. FULVESTRANT. [Suspect]
     Active Substance: FULVESTRANT
     Indication: INVASIVE LOBULAR BREAST CARCINOMA
     Route: 030

REACTIONS (7)
  - Haemolysis [Fatal]
  - Brain herniation [Fatal]
  - Hepatic failure [Fatal]
  - Non-cirrhotic portal hypertension [Fatal]
  - Anaemia [Fatal]
  - Multiple organ dysfunction syndrome [Fatal]
  - Brain oedema [Fatal]
